FAERS Safety Report 15144042 (Version 2)
Quarter: 2018Q3

REPORT INFORMATION
  Report Type: Report from Study
  Country: US (occurrence: US)
  Receive Date: 20180713
  Receipt Date: 20180826
  Transmission Date: 20181010
  Serious: Yes (Hospitalization, Other)
  Sender: FDA-Public Use
  Company Number: US-SHIRE-US201824881

PATIENT
  Age: 35 Year
  Sex: Female

DRUGS (1)
  1. GATTEX [Suspect]
     Active Substance: TEDUGLUTIDE\WATER
     Indication: SHORT-BOWEL SYNDROME
     Dosage: 0.26 UNK, 1X/DAY:QD
     Route: 058
     Dates: start: 20180501

REACTIONS (8)
  - Pain [Unknown]
  - Neuropathy peripheral [Unknown]
  - Atypical pneumonia [Unknown]
  - Colitis [Unknown]
  - Renal failure [Unknown]
  - Blood potassium increased [Unknown]
  - Diarrhoea [Unknown]
  - Inappropriate schedule of drug administration [Unknown]

NARRATIVE: CASE EVENT DATE: 20180701
